FAERS Safety Report 6137205-8 (Version None)
Quarter: 2009Q1

REPORT INFORMATION
  Report Type: 
  Country: None (occurrence: None)
  Receive Date: 20090330
  Receipt Date: 20090325
  Transmission Date: 20090719
  Serious: Yes (Life-Threatening, Hospitalization, Other)
  Sender: FDA-Public Use
  Company Number: DE-BRISTOL-MYERS SQUIBB COMPANY-14558795

PATIENT
  Age: 59 Year
  Sex: Male

DRUGS (4)
  1. CETUXIMAB [Suspect]
     Indication: HEAD AND NECK CANCER
     Dosage: RECENT INFUSION : 18MAR2009
     Route: 042
     Dates: start: 20090207
  2. CISPLATIN [Suspect]
     Indication: HEAD AND NECK CANCER
     Dosage: RECENT INFUSION : 11MAR2009
     Route: 042
     Dates: start: 20090207
  3. DOCETAXEL [Suspect]
     Indication: HEAD AND NECK CANCER
     Dosage: RECENT INFUSION : 11MAR2009
     Route: 042
     Dates: start: 20090207
  4. FLUOROURACIL [Suspect]
     Indication: HEAD AND NECK CANCER
     Dosage: RECENT INFUSION : 15MAR2009 TAKEN FROM DAY 1-5
     Route: 042
     Dates: start: 20090207

REACTIONS (1)
  - NEUTROPENIA [None]
